FAERS Safety Report 6014959-2 (Version None)
Quarter: 2008Q4

REPORT INFORMATION
  Report Type: 
  Country: None (occurrence: None)
  Receive Date: 20081219
  Receipt Date: 20081211
  Transmission Date: 20090506
  Serious: Yes (Other)
  Sender: FDA-Public Use
  Company Number: CA-AMGEN-KDL256970

PATIENT
  Sex: Male
  Weight: 104.4 kg

DRUGS (6)
  1. ENBREL [Suspect]
     Indication: PSORIATIC ARTHROPATHY
     Route: 058
     Dates: start: 20070523, end: 20071011
  2. METHOTREXATE [Suspect]
     Route: 048
     Dates: start: 20030101, end: 20071011
  3. OMEPRAZOLE [Concomitant]
     Route: 048
     Dates: start: 20070220
  4. TIAZAC [Concomitant]
     Dates: start: 20061218
  5. ETODOLAC [Concomitant]
     Dates: start: 20061005
  6. ACETAMINOPHEN W/ CODEINE [Concomitant]
     Dates: start: 20070220

REACTIONS (2)
  - BENIGN NEOPLASM OF THYROID GLAND [None]
  - LUNG NEOPLASM [None]
